FAERS Safety Report 7968976-3 (Version None)
Quarter: 2011Q4

REPORT INFORMATION
  Report Type: 
  Country: None (occurrence: None)
  Receive Date: 20111209
  Receipt Date: 20111202
  Transmission Date: 20120403
  Serious: Yes (Other)
  Sender: FDA-Public Use
  Company Number: PHHY2011JP105768

PATIENT
  Age: 70 Year
  Sex: Female

DRUGS (3)
  1. PREDNISOLONE [Suspect]
     Indication: RHEUMATOID ARTHRITIS
     Dosage: 10 MG, QD
     Dates: start: 20050301
  2. INFLIXIMAB [Suspect]
     Indication: RHEUMATOID ARTHRITIS
     Dosage: 200 MG, QW2
     Dates: start: 20051001
  3. METHOTREXATE [Suspect]
     Indication: RHEUMATOID ARTHRITIS
     Dosage: 12.5 MG, QW
     Dates: start: 20050601

REACTIONS (7)
  - PNEUMOTHORAX [None]
  - MYCOBACTERIUM AVIUM COMPLEX INFECTION [None]
  - PLEURISY [None]
  - CHEST PAIN [None]
  - PLEURAL FIBROSIS [None]
  - PLEURAL EFFUSION [None]
  - COUGH [None]
